FAERS Safety Report 8163474-9 (Version None)
Quarter: 2012Q1

REPORT INFORMATION
  Report Type: 
  Country: None (occurrence: None)
  Receive Date: 20120224
  Receipt Date: 20120215
  Transmission Date: 20120608
  Serious: Yes (Hospitalization, Disabling)
  Sender: FDA-Public Use
  Company Number: JP-JNJFOC-20111006187

PATIENT
  Sex: Female
  Weight: 44 kg

DRUGS (8)
  1. REMICADE [Suspect]
     Route: 042
     Dates: start: 20100707
  2. MIYA-BM [Concomitant]
     Indication: CROHN'S DISEASE
     Route: 065
     Dates: start: 19980601
  3. REMICADE [Suspect]
     Route: 042
     Dates: start: 20100818
  4. 5-AMINOSALICYLIC ACID [Concomitant]
     Indication: CROHN'S DISEASE
     Route: 065
  5. MORPHINE HYDROCHLORIDE [Concomitant]
     Indication: PAIN
     Route: 048
     Dates: start: 20100608
  6. REMICADE [Suspect]
     Indication: CROHN'S DISEASE
     Route: 042
     Dates: start: 20100623
  7. ALL OTHER THERAPEUTIC PRODUCTS [Concomitant]
     Indication: CROHN'S DISEASE
     Route: 065
  8. PENTASA [Concomitant]
     Indication: CROHN'S DISEASE
     Route: 048
     Dates: start: 19980701

REACTIONS (1)
  - RECTAL STENOSIS [None]
